FAERS Safety Report 7535368-0 (Version None)
Quarter: 2011Q2

REPORT INFORMATION
  Report Type: 
  Country: None (occurrence: None)
  Receive Date: 20110609
  Receipt Date: 20080215
  Transmission Date: 20111010
  Serious: Yes (Death, Other)
  Sender: FDA-Public Use
  Company Number: PHHY2008JP01815

PATIENT
  Sex: Female
  Weight: 52 kg

DRUGS (6)
  1. ASPIRIN C [Concomitant]
     Dosage: 60.500 MG/M2, UNK
     Route: 042
     Dates: start: 20070201, end: 20070625
  2. TS 1 [Concomitant]
     Dates: start: 20060710, end: 20061112
  3. FEMARA [Suspect]
     Indication: BREAST CANCER
     Dosage: 2.5 MG/DAY
     Route: 048
     Dates: start: 20061113, end: 20070119
  4. HYSRON [Concomitant]
     Dates: start: 20070119
  5. TAXOL [Concomitant]
  6. TAXOTERE [Concomitant]
     Dosage: 80 MG/M2, UNK
     Route: 042
     Dates: start: 20061214, end: 20070118

REACTIONS (3)
  - LYMPHADENOPATHY [None]
  - BRAIN CANCER METASTATIC [None]
  - NEOPLASM MALIGNANT [None]
